FAERS Safety Report 7614515-6 (Version None)
Quarter: 2011Q3

REPORT INFORMATION
  Report Type: 
  Country: None (occurrence: None)
  Receive Date: 20110708
  Receipt Date: 20110516
  Transmission Date: 20111222
  Serious: No
  Sender: FDA-Public Use
  Company Number: 2011IP000092

PATIENT
  Age: 55 Year
  Sex: Male

DRUGS (1)
  1. BEPREVE [Suspect]
     Indication: EYE INFECTION
     Dosage: 1 GTT;BID;OPH
     Route: 047
     Dates: start: 20110512

REACTIONS (2)
  - INSOMNIA [None]
  - EYE IRRITATION [None]
